FAERS Safety Report 18846703 (Version 6)
Quarter: 2021Q1

REPORT INFORMATION
  Report Type: Spontaneous
  Country: PK (occurrence: PK)
  Receive Date: 20210204
  Receipt Date: 20210330
  Transmission Date: 20210419
  Serious: Yes (Death, Hospitalization, Other)
  Sender: FDA-Public Use
  Company Number: PK-ROCHE-2761435

PATIENT
  Age: 84 Year
  Sex: Female
  Weight: 65 kg

DRUGS (1)
  1. ACTEMRA [Suspect]
     Active Substance: TOCILIZUMAB
     Indication: COVID-19
     Route: 042
     Dates: start: 20210128, end: 20210130

REACTIONS (8)
  - Respiratory rate decreased [Recovered/Resolved]
  - Lymphocyte count increased [Unknown]
  - Heart rate increased [Unknown]
  - Off label use [Unknown]
  - Respiration abnormal [Unknown]
  - Platelet count decreased [Unknown]
  - Death [Fatal]
  - Haematemesis [Unknown]

NARRATIVE: CASE EVENT DATE: 20210128
